FAERS Safety Report 18143619 (Version 1)
Quarter: 2020Q3

REPORT INFORMATION
  Report Type: Report from Study
  Country: DE (occurrence: DE)
  Receive Date: 20200813
  Receipt Date: 20200813
  Transmission Date: 20201103
  Serious: Yes (Hospitalization)
  Sender: FDA-Public Use
  Company Number: DE-ROCHE-2655728

PATIENT
  Age: 72 Year
  Sex: Female
  Weight: 63 kg

DRUGS (15)
  1. EMPAGLIFLOZIN [Concomitant]
     Active Substance: EMPAGLIFLOZIN
  2. ATEZOLIZUMAB. [Suspect]
     Active Substance: ATEZOLIZUMAB
     Indication: GASTRIC CANCER
     Dosage: DAY 1 Q2W: 840 MG IV OVER 1 HOUR (4 CYCLES PERIOPERATIVE WITH FLOT) + DAY 1 Q3W: 1200 MG IV OVER 1 H
     Route: 042
     Dates: start: 20200722
  3. 5?FU [Suspect]
     Active Substance: FLUOROURACIL
     Indication: GASTRIC CANCER
     Dosage: DAY 1 Q2W: 2600 MG/M2 IV OVER 24 HOURS
     Route: 042
     Dates: start: 20200722
  4. ASPIRIN. [Concomitant]
     Active Substance: ASPIRIN
  5. CHLORPROTHIXEN [Concomitant]
     Active Substance: CHLORPROTHIXENE HYDROCHLORIDE
  6. METIMAZOL [Concomitant]
     Active Substance: METHIMAZOLE
  7. LEUCOVORIN. [Suspect]
     Active Substance: LEUCOVORIN
     Indication: GASTRIC CANCER
     Dosage: DAY 1 Q2W: 200 MG/M2 IV OVER 1 HOUR
     Route: 042
     Dates: start: 20200722
  8. PANTOPRAZOLE [Concomitant]
     Active Substance: PANTOPRAZOLE
  9. OXALIPLATIN. [Suspect]
     Active Substance: OXALIPLATIN
     Indication: GASTRIC CANCER
     Dosage: DAY 1 Q2W: 85 MG/M2IV OVER 2 HOURS
     Route: 042
     Dates: start: 20200722
  10. DOCETAXEL. [Suspect]
     Active Substance: DOCETAXEL
     Indication: GASTRIC CANCER
     Dosage: DAY 1 Q2W: 50 MG/M2 IV OVER 1 HOUR
     Route: 042
     Dates: start: 20200722
  11. AMLODIPIN [Concomitant]
     Active Substance: AMLODIPINE BESYLATE
  12. METOPROLOL SUCCINATE. [Concomitant]
     Active Substance: METOPROLOL SUCCINATE
  13. IVABRADIN [Concomitant]
     Active Substance: IVABRADINE
  14. SIMVASTATIN. [Concomitant]
     Active Substance: SIMVASTATIN
  15. CANDESARTAN. [Concomitant]
     Active Substance: CANDESARTAN

REACTIONS (1)
  - Monoparesis [Not Recovered/Not Resolved]

NARRATIVE: CASE EVENT DATE: 20200805
